FAERS Safety Report 7541036-1 (Version None)
Quarter: 2011Q2

REPORT INFORMATION
  Report Type: 
  Country: None (occurrence: None)
  Receive Date: 20110610
  Receipt Date: 20100915
  Transmission Date: 20111010
  Serious: No
  Sender: FDA-Public Use
  Company Number: A0881292A

PATIENT
  Sex: Male

DRUGS (1)
  1. ALTABAX [Suspect]
     Dosage: 1APP SINGLE DOSE
     Route: 061
     Dates: start: 20100914, end: 20100914

REACTIONS (2)
  - BURNING SENSATION [None]
  - PAIN [None]
